FAERS Safety Report 6304521-6 (Version None)
Quarter: 2009Q3

REPORT INFORMATION
  Report Type: 
  Country: None (occurrence: None)
  Receive Date: 20090806
  Receipt Date: 20090722
  Transmission Date: 20100115
  Serious: Yes (Other)
  Sender: FDA-Public Use
  Company Number: 2009PV000060

PATIENT
  Age: 55 Year
  Sex: Male
  Weight: 80 kg

DRUGS (5)
  1. DEPOCYT [Suspect]
     Indication: METASTASES TO MENINGES
     Dosage: 50 MG;1X;INTH
     Route: 037
     Dates: start: 20090703, end: 20090703
  2. VINCRISTINE [Suspect]
     Dosage: 2 MG;QD;IV
     Route: 042
     Dates: start: 20090702
  3. METHOTREXATE [Suspect]
     Dosage: 5500 MG;QD;IV
     Route: 042
     Dates: start: 20090702
  4. DOXORUBICIN HCL [Suspect]
     Dosage: 110 MG;QD;IV
     Route: 042
     Dates: start: 20090703
  5. CYCLOPHOSPHAMIDE [Suspect]
     Dosage: 460 MG;QD;IV
     Route: 042
     Dates: start: 20090703

REACTIONS (2)
  - BACTERIAL SEPSIS [None]
  - GENERAL PHYSICAL CONDITION ABNORMAL [None]
